FAERS Safety Report 16455277 (Version 1)
Quarter: 2019Q2

REPORT INFORMATION
  Report Type: Spontaneous
  Country: CA (occurrence: CA)
  Receive Date: 20190620
  Receipt Date: 20190620
  Transmission Date: 20190711
  Serious: Yes (Other)
  Sender: FDA-Public Use
  Company Number: CA-CELLTRION INC.-2019CA019833

PATIENT

DRUGS (14)
  1. PREDNISONE. [Concomitant]
     Active Substance: PREDNISONE
     Dosage: 40 MG, WEEKLY (8 TABS, TAPER BY 1 TAB WEEKLY X 8 WEEKS)
     Route: 048
  2. VIT D [Concomitant]
     Active Substance: VITAMIN D NOS
     Dosage: 4000 UI, 1X/DAY
     Route: 048
  3. INFLECTRA [Suspect]
     Active Substance: INFLIXIMAB-DYYB
     Dosage: 800 MG, EVERY 6 WEEKS
     Route: 042
     Dates: start: 20190408, end: 20190408
  4. CODEINE [Concomitant]
     Active Substance: CODEINE
     Dosage: UNK, AS NEEDED (1-2 TABLETS)
  5. INFLECTRA [Suspect]
     Active Substance: INFLIXIMAB-DYYB
     Dosage: 800 MG, 0, 2, 6 WEEKS, THEN EVERY 8 WEEKS
     Route: 042
     Dates: start: 20190228
  6. METHOTREXATE. [Concomitant]
     Active Substance: METHOTREXATE
     Dosage: 12.5 MG (5 TABS), WEEKLY
  7. FOLIC ACID. [Concomitant]
     Active Substance: FOLIC ACID
     Dosage: 1 MG, 1X/DAY
     Route: 048
  8. INFLECTRA [Suspect]
     Active Substance: INFLIXIMAB-DYYB
     Dosage: 800 MG, 0, 2, 6 WEEKS, THEN EVERY 8 WEEKS
     Route: 042
     Dates: start: 20190313, end: 20190313
  9. INFLECTRA [Suspect]
     Active Substance: INFLIXIMAB-DYYB
     Dosage: 800 MG, EVERY 4 WEEKS
     Route: 042
     Dates: start: 20190507
  10. METHOTREXATE. [Concomitant]
     Active Substance: METHOTREXATE
     Dosage: 12.5 MG, WEEKLY (5 TABS, WEEKLY)
  11. INFLECTRA [Suspect]
     Active Substance: INFLIXIMAB-DYYB
     Dosage: 800 MG, EVERY 0, 2, 6 WEEKS, THEN EVERY 8 WEEKS
     Route: 042
     Dates: start: 20190313, end: 20190313
  12. INFLECTRA [Suspect]
     Active Substance: INFLIXIMAB-DYYB
     Dosage: 800 MG, 0, 2, 6 WEEKS, THEN EVERY 8 WEEKS
     Route: 042
     Dates: start: 20190313, end: 20190313
  13. INFLECTRA [Suspect]
     Active Substance: INFLIXIMAB-DYYB
     Dosage: 800 MG, EVERY 6 WEEKS
     Route: 042
     Dates: start: 20190605, end: 20190605
  14. CALCIUM [Concomitant]
     Active Substance: CALCIUM
     Dosage: 2000 MG, 1X/DAY
     Route: 048

REACTIONS (13)
  - Nervousness [Unknown]
  - Off label use [Unknown]
  - Heart rate increased [Unknown]
  - Respiratory rate increased [Unknown]
  - Flushing [Unknown]
  - Condition aggravated [Unknown]
  - Clostridium difficile infection [Unknown]
  - Anxiety [Unknown]
  - Headache [Unknown]
  - Panic attack [Unknown]
  - Off label use [Unknown]
  - Blood pressure fluctuation [Unknown]
  - Palpitations [Unknown]

NARRATIVE: CASE EVENT DATE: 20190228
